FAERS Safety Report 24230827 (Version 1)
Quarter: 2024Q3

REPORT INFORMATION
  Report Type: Spontaneous
  Country: US (occurrence: US)
  Receive Date: 20240821
  Receipt Date: 20240821
  Transmission Date: 20241016
  Serious: No
  Sender: RECKITT BENCKISER
  Company Number: US-PROD-AS2-212756134-RB-084731-2024

PATIENT
  Age: 53 Year
  Sex: Male
  Weight: 90.91 kg

DRUGS (1)
  1. MUCINEX D [Suspect]
     Active Substance: GUAIFENESIN\PSEUDOEPHEDRINE HYDROCHLORIDE
     Indication: Productive cough
     Dosage: 1200 MILLIGRAM, QD
     Route: 048
     Dates: start: 20240118

REACTIONS (2)
  - Sputum discoloured [Not Recovered/Not Resolved]
  - Condition aggravated [Not Recovered/Not Resolved]

NARRATIVE: CASE EVENT DATE: 20240119
